FAERS Safety Report 7287344-3 (Version None)
Quarter: 2011Q1

REPORT INFORMATION
  Report Type: 
  Country: None (occurrence: None)
  Receive Date: 20110207
  Receipt Date: 20110207
  Transmission Date: 20110831
  Serious: Yes (Life-Threatening, Hospitalization)
  Sender: FDA-Public Use
  Company Number: None

PATIENT
  Age: 24 Year
  Sex: Female
  Weight: 74.8435 kg

DRUGS (1)
  1. LEXAPRO [Suspect]
     Indication: DEPRESSION
     Dosage: 20 MG ONCE DAILY
     Dates: start: 20101101, end: 20110129

REACTIONS (5)
  - PARAESTHESIA [None]
  - REFUSAL OF TREATMENT BY PATIENT [None]
  - DIZZINESS [None]
  - HEADACHE [None]
  - HYPERSENSITIVITY [None]
